FAERS Safety Report 17153042 (Version 1)
Quarter: 2019Q4

REPORT INFORMATION
  Report Type: Spontaneous
  Country: FR (occurrence: FR)
  Receive Date: 20191213
  Receipt Date: 20191213
  Transmission Date: 20200122
  Serious: Yes (Other)
  Sender: FDA-Public Use
  Company Number: FR-MYLANLABS-2019M1122861

PATIENT
  Age: 74 Year
  Sex: Male
  Weight: 97 kg

DRUGS (6)
  1. ROVAMYCINE                         /00074404/ [Suspect]
     Active Substance: SPIRAMYCIN ADIPATE
     Indication: RESPIRATORY TRACT INFECTION
     Dosage: 9 MEGA-INTERNATIONAL UNIT, QD
     Route: 042
     Dates: start: 20190707
  2. NOXAFIL [Suspect]
     Active Substance: POSACONAZOLE
     Indication: RESPIRATORY TRACT INFECTION
     Dosage: 1 DOSAGE FORM, QD
     Route: 042
     Dates: start: 20190707
  3. CEFOTAXIME [Suspect]
     Active Substance: CEFOTAXIME SODIUM
     Indication: RESPIRATORY TRACT INFECTION
     Dosage: 6 GRAM, QD
     Route: 042
     Dates: start: 20190707
  4. AMBISOME [Suspect]
     Active Substance: AMPHOTERICIN B
     Indication: RESPIRATORY TRACT INFECTION
     Dosage: 250 MILLIGRAM, QD
     Route: 042
     Dates: start: 20190706, end: 20190709
  5. ESOMEPRAZOLE. [Suspect]
     Active Substance: ESOMEPRAZOLE MAGNESIUM
     Indication: GASTROOESOPHAGEAL REFLUX DISEASE
     Dosage: 40 MILLIGRAM, QD
     Route: 048
     Dates: start: 20190706
  6. BACTRIM [Suspect]
     Active Substance: SULFAMETHOXAZOLE\TRIMETHOPRIM
     Indication: RESPIRATORY TRACT INFECTION
     Dosage: 6.4 GRAM, QD
     Route: 042
     Dates: start: 20190706, end: 20190709

REACTIONS (1)
  - Acute kidney injury [Not Recovered/Not Resolved]

NARRATIVE: CASE EVENT DATE: 20190708
